FAERS Safety Report 6176438-1 (Version None)
Quarter: 2009Q2

REPORT INFORMATION
  Report Type: 
  Country: None (occurrence: None)
  Receive Date: 20090501
  Receipt Date: 20081209
  Transmission Date: 20091009
  Serious: Yes (Life-Threatening, Other)
  Sender: FDA-Public Use
  Company Number: DE-ALEXION-A200800131

PATIENT

DRUGS (13)
  1. SOLIRIS [Suspect]
     Indication: PAROXYSMAL NOCTURNAL HAEMOGLOBINURIA
     Dosage: 600 MG, UNK
     Route: 042
     Dates: start: 20070901
  2. SOLIRIS [Suspect]
     Dosage: 900 MG, UNK
     Route: 042
     Dates: end: 20080101
  3. SOLIRIS [Suspect]
     Dosage: UNK, SINGLE
     Route: 042
     Dates: start: 20080901
  4. AUGMENTIN '125' [Suspect]
  5. METOPROLOL TARTRATE [Concomitant]
     Dosage: 100 MG, UNK
     Route: 048
     Dates: start: 20010101
  6. FUROSEMID                          /00032601/ [Concomitant]
     Dosage: 40 MG, UNK
     Route: 048
     Dates: start: 20010101
  7. MACUMAR [Concomitant]
     Dosage: INR ADAPTED
     Route: 048
     Dates: start: 19830101
  8. HEPARIN [Concomitant]
     Dosage: UNK
     Route: 058
  9. ENALAPRIL [Concomitant]
     Dosage: 5 MG, UNK
     Route: 048
     Dates: start: 20080801
  10. TAMSULOSIN HCL [Concomitant]
     Dosage: 0.4 MG, UNK
     Route: 048
     Dates: start: 20080801
  11. PREDNISON [Concomitant]
     Dosage: 7.5 MG, UNK
     Route: 048
     Dates: start: 20080904, end: 20081008
  12. PREDNISON [Concomitant]
     Dosage: 5 MG, UNK
     Route: 048
     Dates: start: 20081009
  13. CIPROFLOXACIN [Concomitant]
     Dosage: 875 MG, BID
     Route: 048
     Dates: start: 20081104, end: 20081114

REACTIONS (7)
  - BLOOD PRODUCT TRANSFUSION DEPENDENT [None]
  - HAEMOGLOBIN DECREASED [None]
  - HAEMOLYSIS [None]
  - NEUTROPENIA [None]
  - RASH [None]
  - RASH PRURITIC [None]
  - RESPIRATORY TRACT INFECTION [None]
